FAERS Safety Report 17346347 (Version 1)
Quarter: 2020Q1

REPORT INFORMATION
  Report Type: Report from Study
  Country: US (occurrence: US)
  Receive Date: 20200129
  Receipt Date: 20200129
  Transmission Date: 20200409
  Serious: No
  Sender: FDA-Public Use
  Company Number: US-EXELIXIS-CABO-19021602

PATIENT
  Age: 61 Year
  Sex: Female
  Weight: 68.03 kg

DRUGS (6)
  1. LENVIMA [Suspect]
     Active Substance: LENVATINIB
     Dosage: 18 MG, UNK
  2. LENVIMA [Suspect]
     Active Substance: LENVATINIB
     Indication: RENAL CANCER
     Dosage: UNK
  3. LOSARTAN AND HYDROCHLOROTHIAZIDE [Concomitant]
     Active Substance: HYDROCHLOROTHIAZIDE\LOSARTAN POTASSIUM
  4. LENVIMA [Suspect]
     Active Substance: LENVATINIB
     Dosage: 14 MG, QD
  5. AFINITOR [Concomitant]
     Active Substance: EVEROLIMUS
     Dosage: UNK
  6. CABOMETYX [Suspect]
     Active Substance: CABOZANTINIB S-MALATE
     Indication: RENAL CANCER
     Dosage: 60 MG, QD
     Route: 048
     Dates: start: 20170111

REACTIONS (10)
  - Decreased appetite [Unknown]
  - Fatigue [Unknown]
  - Pyrexia [Unknown]
  - Nausea [Unknown]
  - Oral infection [Recovered/Resolved]
  - Diarrhoea [Unknown]
  - Headache [Unknown]
  - Cough [Unknown]
  - Blood pressure increased [Unknown]
  - Stomatitis [Recovered/Resolved]

NARRATIVE: CASE EVENT DATE: 20190530
